FAERS Safety Report 12452906 (Version 1)
Quarter: 2016Q2

REPORT INFORMATION
  Report Type: Report from Study
  Country: US (occurrence: US)
  Receive Date: 20160609
  Receipt Date: 20160609
  Transmission Date: 20160815
  Serious: Yes (Hospitalization)
  Sender: FDA-Public Use
  Company Number: US-BIOGEN-2016BI00248863

PATIENT
  Weight: 2.72 kg

DRUGS (1)
  1. AVONEX [Suspect]
     Active Substance: INTERFERON BETA-1A
     Indication: MATERNAL EXPOSURE TIMING UNSPECIFIED
     Route: 064
     Dates: start: 20120701, end: 20150530

REACTIONS (3)
  - Foetal exposure timing unspecified [Recovered/Resolved]
  - Arrhythmia neonatal [Unknown]
  - Blood glucose increased [Recovered/Resolved]
